FAERS Safety Report 8030990-X (Version None)
Quarter: 2011Q4

REPORT INFORMATION
  Report Type: 
  Country: None (occurrence: None)
  Receive Date: 20111202
  Receipt Date: 20090818
  Transmission Date: 20120403
  Serious: Yes (Hospitalization)
  Sender: FDA-Public Use
  Company Number: 2009-201021-NL

PATIENT
  Age: 23 Year
  Sex: Female
  Weight: 59 kg

DRUGS (9)
  1. NUVARING [Suspect]
     Indication: CONTRACEPTION
     Dosage: 1 DF; QM; VAG
     Route: 067
     Dates: start: 20060501, end: 20061101
  2. METROGEL [Concomitant]
  3. BENZACLIN [Concomitant]
  4. ARMODAFINIL [Concomitant]
  5. LIQUIBID [Concomitant]
  6. AZITHROMYCIN [Concomitant]
  7. HYDROCORTISONE [Concomitant]
  8. COUMADIN [Suspect]
     Indication: ANTICOAGULANT THERAPY
  9. NASONEX [Concomitant]

REACTIONS (9)
  - LYMPHADENOPATHY [None]
  - PULMONARY EMBOLISM [None]
  - PULMONARY INFARCTION [None]
  - DEEP VEIN THROMBOSIS [None]
  - PHARYNGITIS [None]
  - DERMATITIS [None]
  - ACNE [None]
  - MENSTRUAL DISORDER [None]
  - BLOOD DISORDER [None]
